FAERS Safety Report 18181610 (Version 1)
Quarter: 2020Q3

REPORT INFORMATION
  Report Type: Spontaneous
  Country: ES (occurrence: ES)
  Receive Date: 20200821
  Receipt Date: 20200821
  Transmission Date: 20201103
  Serious: Yes (Hospitalization)
  Sender: FDA-Public Use
  Company Number: ES-CADILA HEALTHCARE LIMITED-ES-ZYDUS-028732

PATIENT

DRUGS (5)
  1. GABAPENTINE [Suspect]
     Active Substance: GABAPENTIN
     Indication: DRUG ABUSER
     Dosage: 300 MILLIGRAM,(INTERVAL :8 HOURS)
     Route: 048
     Dates: start: 20170922, end: 20180105
  2. QUETIAPINE. [Suspect]
     Active Substance: QUETIAPINE
     Indication: DRUG ABUSER
     Dosage: 150 MILLIGRAM,(INTERVAL :1 DAYS)
     Route: 048
     Dates: start: 20171025, end: 20180105
  3. ANTABUS [Suspect]
     Active Substance: DISULFIRAM
     Indication: DRUG ABUSER
     Dosage: 250 MILLIGRAM,(INTERVAL :1 DAYS)
     Route: 048
     Dates: start: 20171026, end: 20180105
  4. LISDEXAMFETAMINE [Suspect]
     Active Substance: LISDEXAMFETAMINE
     Indication: ATTENTION DEFICIT HYPERACTIVITY DISORDER
     Dosage: 30 MILLIGRAM,(INTERVAL :1 DAYS)
     Route: 048
     Dates: start: 20171123, end: 20180105
  5. HIDROXIL B12 B6 B1 [Concomitant]
     Active Substance: HYDROXOCOBALAMIN\PYRIDOXINE HYDROCHLORIDE\THIAMINE HYDROCHLORIDE
     Indication: DRUG ABUSER
     Route: 048
     Dates: start: 20170922, end: 20180105

REACTIONS (2)
  - Hyperbilirubinaemia [Unknown]
  - Hepatitis [Recovering/Resolving]

NARRATIVE: CASE EVENT DATE: 20180106
